FAERS Safety Report 5511605-9 (Version None)
Quarter: 2007Q4

REPORT INFORMATION
  Report Type: 
  Country: None (occurrence: None)
  Receive Date: 20071109
  Receipt Date: 20071105
  Transmission Date: 20080405
  Serious: Yes (Hospitalization, Other)
  Sender: FDA-Public Use
  Company Number: DK-BRISTOL-MYERS SQUIBB COMPANY-13840756

PATIENT
  Age: 69 Year
  Sex: Male

DRUGS (3)
  1. DASATINIB [Suspect]
     Indication: ACUTE LYMPHOCYTIC LEUKAEMIA
     Route: 048
     Dates: start: 20070124, end: 20070710
  2. SIMVASTATIN [Concomitant]
  3. METOPROLOL TARTRATE [Concomitant]

REACTIONS (2)
  - ATRIAL FIBRILLATION [None]
  - PLEURAL EFFUSION [None]
